FAERS Safety Report 11302560 (Version 1)
Quarter: 2015Q3

REPORT INFORMATION
  Report Type: Spontaneous
  Country: GB (occurrence: GB)
  Receive Date: 20150723
  Receipt Date: 20150723
  Transmission Date: 20151125
  Serious: Yes (Life-Threatening, Hospitalization)
  Sender: FDA-Public Use
  Company Number: GB-TEVA-578896ACC

PATIENT
  Age: 81 Year
  Sex: Female
  Weight: 71 kg

DRUGS (12)
  1. SIMVASTATIN. [Concomitant]
     Active Substance: SIMVASTATIN
     Dosage: EVERY NIGHT
  2. ADCAL-D3 [Concomitant]
     Active Substance: CALCIUM CARBONATE\CHOLECALCIFEROL
     Dosage: 2 DOSAGE FORMS DAILY;
  3. CITALOPRAM [Concomitant]
     Active Substance: CITALOPRAM HYDROBROMIDE
     Dosage: 20 MILLIGRAM DAILY; EVERY NIGHT.
  4. CLOPIDOGREL [Concomitant]
     Active Substance: CLOPIDOGREL BISULFATE
     Dosage: 75 MILLIGRAM DAILY; EVERY MORNING
  5. DILTIAZEM [Concomitant]
     Active Substance: DILTIAZEM
     Dosage: 200 MILLIGRAM DAILY;
  6. LANSOPRAZOLE. [Concomitant]
     Active Substance: LANSOPRAZOLE
     Dosage: 30 MILLIGRAM DAILY; EVERY MORNING.
  7. NICORANDIL [Concomitant]
     Active Substance: NICORANDIL
     Dosage: 40 MILLIGRAM DAILY;
  8. RAMIPRIL. [Concomitant]
     Active Substance: RAMIPRIL
     Dosage: 2.5 MILLIGRAM DAILY; BEEN ON LONGTERM.
  9. HUMULIN I [Concomitant]
     Dosage: EVERY NIGHT
  10. ISOSORBIDE MONONITRATE. [Concomitant]
     Active Substance: ISOSORBIDE MONONITRATE
     Dosage: 60 MILLIGRAM DAILY; EVERY MORNING.
  11. TRIMETHOPRIM. [Suspect]
     Active Substance: TRIMETHOPRIM
     Indication: URINARY TRACT INFECTION
     Dosage: 400 MILLIGRAM DAILY; THEN REVERT BACK TO PROPHYLACTIC DOSE OF 100MG DAILY
     Route: 048
     Dates: start: 20150622, end: 20150628
  12. GLICLAZIDE [Concomitant]
     Active Substance: GLICLAZIDE
     Dosage: 90 MILLIGRAM DAILY; EVERY MORNING

REACTIONS (2)
  - Acute kidney injury [Recovering/Resolving]
  - Hyperkalaemia [Recovering/Resolving]

NARRATIVE: CASE EVENT DATE: 20150703
